FAERS Safety Report 8265740-5 (Version None)
Quarter: 2012Q2

REPORT INFORMATION
  Report Type: 
  Country: None (occurrence: None)
  Receive Date: 20120406
  Receipt Date: 20120404
  Transmission Date: 20120825
  Serious: Yes (Other)
  Sender: FDA-Public Use
  Company Number: FR-SANOFI-AVENTIS-2012SA023631

PATIENT
  Age: 64 Year
  Sex: Female

DRUGS (3)
  1. TAXOTERE [Suspect]
     Route: 041
     Dates: start: 20120201, end: 20120201
  2. TAXOTERE [Suspect]
     Route: 041
     Dates: start: 20120301, end: 20120301
  3. TAXOTERE [Suspect]
     Indication: BREAST CANCER
     Route: 041
     Dates: start: 20120130, end: 20120130

REACTIONS (5)
  - ANGIOEDEMA [None]
  - LOSS OF CONSCIOUSNESS [None]
  - BRONCHOSPASM [None]
  - VASOPLEGIA SYNDROME [None]
  - PYREXIA [None]
